FAERS Safety Report 20605261 (Version 4)
Quarter: 2023Q2

REPORT INFORMATION
  Report Type: Spontaneous
  Country: GB (occurrence: GB)
  Receive Date: 20220317
  Receipt Date: 20230503
  Transmission Date: 20230721
  Serious: Yes (Death, Hospitalization, Other)
  Sender: FDA-Public Use
  Company Number: GB-AMGEN-GBRSP2022044413

PATIENT

DRUGS (8)
  1. ADALIMUMAB [Suspect]
     Active Substance: ADALIMUMAB
     Indication: Colitis ulcerative
     Dosage: 40 MILLIGRAM, Q2WK
     Route: 065
  2. ADALIMUMAB [Suspect]
     Active Substance: ADALIMUMAB
     Dosage: 160 MILLIGRAM, Q2WK
     Route: 065
  3. INFLIXIMAB [Concomitant]
     Active Substance: INFLIXIMAB
     Indication: Colitis ulcerative
     Dosage: 315.3 MILLIGRAM, Q8WK
     Route: 065
  4. GOLIMUMAB [Concomitant]
     Active Substance: GOLIMUMAB
     Indication: Colitis ulcerative
     Dosage: 66.7 MILLIGRAM, Q4WK
     Route: 065
  5. VEDOLIZUMAB [Concomitant]
     Active Substance: VEDOLIZUMAB
     Indication: Colitis ulcerative
     Dosage: 300 MILLIGRAM, Q6WK
  6. VEDOLIZUMAB [Concomitant]
     Active Substance: VEDOLIZUMAB
     Dosage: 300 MILLIGRAM, Q8WK
  7. TOFACITINIB [Concomitant]
     Active Substance: TOFACITINIB
     Indication: Colitis ulcerative
     Dosage: 5 MILLIGRAM, BID
  8. BUDESONIDE [Concomitant]
     Active Substance: BUDESONIDE
     Indication: Colitis ulcerative
     Dosage: UNK

REACTIONS (17)
  - Death [Fatal]
  - Colitis ulcerative [Unknown]
  - Appendicitis [Unknown]
  - Neutropenia [Unknown]
  - Adverse drug reaction [Unknown]
  - Drug level decreased [Unknown]
  - Therapy non-responder [Unknown]
  - Drug ineffective [Unknown]
  - Drug specific antibody present [Unknown]
  - Weight abnormal [Unknown]
  - Viral infection [Unknown]
  - Anaemia [Unknown]
  - Hypertension [Unknown]
  - Upper respiratory tract infection [Unknown]
  - Bacterial infection [Unknown]
  - Herpes zoster [Unknown]
  - Rash [Unknown]
